FAERS Safety Report 5606689-3 (Version None)
Quarter: 2008Q1

REPORT INFORMATION
  Report Type: 
  Country: None (occurrence: None)
  Receive Date: 20080129
  Receipt Date: 20071119
  Transmission Date: 20080703
  Serious: No
  Sender: FDA-Public Use
  Company Number: A0692953A

PATIENT
  Age: 43 Year
  Sex: Female
  Weight: 90.9 kg

DRUGS (2)
  1. COMBIVIR [Suspect]
     Dosage: 1TAB TWICE PER DAY
     Route: 048
     Dates: start: 20071028
  2. NO CONCURRENT MEDICATION [Concomitant]

REACTIONS (5)
  - DEHYDRATION [None]
  - EYE PAIN [None]
  - NAUSEA [None]
  - VISUAL DISTURBANCE [None]
  - VOMITING [None]
